FAERS Safety Report 6890799-7 (Version None)
Quarter: 2010Q3

REPORT INFORMATION
  Report Type: 
  Country: None (occurrence: None)
  Receive Date: 20100731
  Receipt Date: 20090324
  Transmission Date: 20110219
  Serious: No
  Sender: FDA-Public Use
  Company Number: US-PFIZER INC-2009158978

PATIENT
  Age: 8 Year

DRUGS (1)
  1. LIPITOR [Suspect]
     Dosage: 5 MG, 1X/DAY

REACTIONS (1)
  - LOW DENSITY LIPOPROTEIN INCREASED [None]
